FAERS Safety Report 6534092-0 (Version None)
Quarter: 2010Q1

REPORT INFORMATION
  Report Type: 
  Country: None (occurrence: None)
  Receive Date: 20100112
  Receipt Date: 20100106
  Transmission Date: 20100710
  Serious: Yes (Death, Hospitalization, Other)
  Sender: FDA-Public Use
  Company Number: PHHO2010ES00564

PATIENT
  Sex: Male

DRUGS (6)
  1. CGP 57148B T35717+ [Suspect]
     Indication: GASTROINTESTINAL STROMAL TUMOUR
     Dosage: 400 MG, QD
     Route: 048
     Dates: start: 20091201, end: 20091219
  2. SUTENT COMP-SUT+ [Suspect]
     Indication: GASTROINTESTINAL STROMAL TUMOUR
     Dosage: 25 MG, QD
     Route: 048
     Dates: start: 20091214, end: 20091219
  3. ENALAPRIL [Concomitant]
     Indication: HYPERTENSION
     Dosage: UNK
  4. IBUPROFEN [Concomitant]
     Indication: PAIN
     Dosage: UNK
  5. ADOLONTA [Concomitant]
     Indication: PAIN
     Dosage: UNK
  6. OMEPRAZOL [Concomitant]
     Indication: PROPHYLAXIS
     Dosage: UNK

REACTIONS (8)
  - ANAEMIA [None]
  - COGNITIVE DISORDER [None]
  - CONFUSIONAL STATE [None]
  - NEUROLOGICAL DECOMPENSATION [None]
  - RECTAL HAEMORRHAGE [None]
  - RESPIRATORY DISTRESS [None]
  - REVERSIBLE POSTERIOR LEUKOENCEPHALOPATHY SYNDROME [None]
  - STATUS EPILEPTICUS [None]
